FAERS Safety Report 20151955 (Version 2)
Quarter: 2022Q1

REPORT INFORMATION
  Report Type: Spontaneous
  Country: US (occurrence: US)
  Receive Date: 20211206
  Receipt Date: 20220104
  Transmission Date: 20220423
  Serious: No
  Sender: FDA-Public Use
  Company Number: US-JNJFOC-20211144921

PATIENT
  Age: 42 Year
  Sex: Male
  Weight: 61.744 kg

DRUGS (1)
  1. SIMPONI [Suspect]
     Active Substance: GOLIMUMAB
     Indication: Colitis ulcerative
     Dosage: STRENGTH: 100 MG/ML
     Route: 058
     Dates: start: 2019

REACTIONS (3)
  - Injection site pain [Unknown]
  - Injection site mass [Unknown]
  - Needle issue [Unknown]

NARRATIVE: CASE EVENT DATE: 20211119
